FAERS Safety Report 18354497 (Version 1)
Quarter: 2020Q4

REPORT INFORMATION
  Report Type: Spontaneous
  Country: SG (occurrence: SG)
  Receive Date: 20201007
  Receipt Date: 20201007
  Transmission Date: 20210114
  Serious: Yes (Other)
  Sender: FDA-Public Use
  Company Number: SG-GLAXOSMITHKLINE-SG2020APC198804

PATIENT
  Sex: Female

DRUGS (3)
  1. ACYCLOVIR. [Suspect]
     Active Substance: ACYCLOVIR
     Indication: PRODUCT USED FOR UNKNOWN INDICATION
     Dosage: UNK
  2. AUGMENTIN [Suspect]
     Active Substance: AMOXICILLIN\CLAVULANATE POTASSIUM
     Indication: MASTITIS
     Dosage: UNK
     Route: 048
     Dates: start: 20200508
  3. PREDNISOLONE. [Suspect]
     Active Substance: PREDNISOLONE
     Indication: PRODUCT USED FOR UNKNOWN INDICATION
     Dosage: UNK

REACTIONS (3)
  - Facial paralysis [Unknown]
  - Haemorrhagic diathesis [Unknown]
  - Increased tendency to bruise [Unknown]
